FAERS Safety Report 22353038 (Version 1)
Quarter: 2023Q2

REPORT INFORMATION
  Report Type: Spontaneous
  Country: NL (occurrence: NL)
  Receive Date: 20230523
  Receipt Date: 20230523
  Transmission Date: 20230722
  Serious: Yes (Other)
  Sender: FDA-Public Use
  Company Number: None

PATIENT
  Sex: Female
  Weight: 65 kg

DRUGS (1)
  1. LETROZOLE [Suspect]
     Active Substance: LETROZOLE
     Indication: Breast cancer
     Dosage: LETROZOL TABLET COATED 2.5MG / BRAND NAME NOT SPECIFIED
     Route: 065
     Dates: start: 20230126, end: 20230202

REACTIONS (1)
  - Epilepsy [Recovered/Resolved]
